FAERS Safety Report 7170166-1 (Version None)
Quarter: 2010Q4

REPORT INFORMATION
  Report Type: 
  Country: None (occurrence: None)
  Receive Date: 20101214
  Receipt Date: 20101214
  Transmission Date: 20110411
  Serious: Yes (Life-Threatening, Hospitalization)
  Sender: FDA-Public Use
  Company Number: None

PATIENT
  Age: 73 Year
  Sex: Male
  Weight: 139.2543 kg

DRUGS (2)
  1. ETODOLAC [Suspect]
     Indication: BACK PAIN
     Dosage: 400 MG 3X DAY
     Dates: start: 20100416, end: 20100505
  2. ETODOLAC [Suspect]
     Indication: NERVE COMPRESSION
     Dosage: 400 MG 3X DAY
     Dates: start: 20100416, end: 20100505

REACTIONS (3)
  - CARDIAC FAILURE CONGESTIVE [None]
  - RENAL IMPAIRMENT [None]
  - TYPE 1 DIABETES MELLITUS [None]
